FAERS Safety Report 6346624-6 (Version None)
Quarter: 2009Q3

REPORT INFORMATION
  Report Type: 
  Country: None (occurrence: None)
  Receive Date: 20090909
  Receipt Date: 20090901
  Transmission Date: 20100115
  Serious: Yes (Other)
  Sender: FDA-Public Use
  Company Number: US-GENENTECH-288945

PATIENT
  Sex: Male
  Weight: 48 kg

DRUGS (4)
  1. SOMATROPIN [Suspect]
     Indication: BODY HEIGHT BELOW NORMAL
     Dosage: 0.24 MG/KG/WK, QD
     Route: 058
     Dates: start: 20090720, end: 20090804
  2. ENZYMES NOS [Concomitant]
     Indication: DRUG USE FOR UNKNOWN INDICATION
     Dosage: UNK
  3. BIPAP [Concomitant]
     Indication: DRUG USE FOR UNKNOWN INDICATION
     Dosage: UNK
  4. COUMADIN [Concomitant]
     Indication: AORTIC VALVE REPLACEMENT
     Dosage: UNK

REACTIONS (4)
  - DYSPNOEA [None]
  - FATIGUE [None]
  - GRIP STRENGTH DECREASED [None]
  - HEADACHE [None]
